FAERS Safety Report 25433838 (Version 2)
Quarter: 2025Q2

REPORT INFORMATION
  Report Type: Report from Study
  Country: US (occurrence: US)
  Receive Date: 20250613
  Receipt Date: 20250626
  Transmission Date: 20250717
  Serious: Yes (Other)
  Sender: ACADIA PHARMACEUTICALS
  Company Number: US-ACADIA PHARMACEUTICALS INC.-ACA-2025-PIM-006889

PATIENT
  Age: 64 Year
  Sex: Male

DRUGS (10)
  1. NUPLAZID [Suspect]
     Active Substance: PIMAVANSERIN TARTRATE
     Indication: Parkinson^s disease psychosis
     Dosage: 34 MILLIGRAM, QD
     Route: 048
     Dates: start: 20250603, end: 20250606
  2. RIVASTIGMINE [Concomitant]
     Active Substance: RIVASTIGMINE
  3. DULOXETINE [Concomitant]
     Active Substance: DULOXETINE
  4. PREDNISONE [Concomitant]
     Active Substance: PREDNISONE
  5. GABAPENTIN [Concomitant]
     Active Substance: GABAPENTIN
  6. SERTRALINE [Concomitant]
     Active Substance: SERTRALINE HYDROCHLORIDE
  7. CARBIDOPA\LEVODOPA [Concomitant]
     Active Substance: CARBIDOPA\LEVODOPA
  8. XARELTO [Concomitant]
     Active Substance: RIVAROXABAN
  9. PRAMIPEXOLE [Concomitant]
     Active Substance: PRAMIPEXOLE
  10. PROPRANOLOL [Concomitant]
     Active Substance: PROPRANOLOL HYDROCHLORIDE

REACTIONS (5)
  - Crying [Recovered/Resolved]
  - Psychotic disorder [Recovered/Resolved]
  - Gait inability [Recovered/Resolved]
  - Confusional state [Recovered/Resolved]
  - Agitation [Recovered/Resolved]

NARRATIVE: CASE EVENT DATE: 20250603
